FAERS Safety Report 9859036 (Version 1)
Quarter: 2014Q1

REPORT INFORMATION
  Report Type: Spontaneous
  Country: IT (occurrence: IT)
  Receive Date: 20140131
  Receipt Date: 20140131
  Transmission Date: 20141002
  Serious: Yes (Other)
  Sender: FDA-Public Use
  Company Number: IT-ALLERGAN-1401319US

PATIENT
  Age: 77 Year
  Sex: Female
  Weight: 50 kg

DRUGS (3)
  1. LUMIGAN [Suspect]
     Indication: GLAUCOMA
     Dosage: 1 DROP DAILY
     Route: 047
     Dates: start: 20130208, end: 20131011
  2. COSOPT [Concomitant]
     Dosage: UNK
     Route: 047
     Dates: start: 20130208, end: 20131101
  3. AZOPT [Concomitant]
     Dosage: UNK
     Route: 047

REACTIONS (1)
  - Hypoacusis [Recovered/Resolved]
